FAERS Safety Report 9444717 (Version 1)
Quarter: 2013Q3

REPORT INFORMATION
  Report Type: Report from Study
  Country: IN (occurrence: IN)
  Receive Date: 20130807
  Receipt Date: 20130807
  Transmission Date: 20140515
  Serious: Yes (Death)
  Sender: FDA-Public Use
  Company Number: IN-SANOFI-AVENTIS-2013SA076656

PATIENT
  Age: 38 Year
  Sex: Female

DRUGS (1)
  1. TAXOTERE [Suspect]
     Indication: BREAST CANCER
     Dosage: CYCLES: 1-6
     Route: 042
     Dates: start: 20130329, end: 20130719

REACTIONS (4)
  - Respiratory failure [Fatal]
  - Dyspnoea [Fatal]
  - Nasopharyngitis [Unknown]
  - Cough [Unknown]
